FAERS Safety Report 4901704-4 (Version None)
Quarter: 2006Q1

REPORT INFORMATION
  Report Type: 
  Country: None (occurrence: None)
  Receive Date: 20060206
  Receipt Date: 20051128
  Transmission Date: 20060701
  Serious: Yes (Other)
  Sender: FDA-Public Use
  Company Number: US-BRISTOL-MYERS SQUIBB COMPANY-13197025

PATIENT

DRUGS (3)
  1. TAXOL [Suspect]
     Indication: BREAST CANCER METASTATIC
  2. GEMCITABINE [Concomitant]
     Indication: BREAST CANCER METASTATIC
  3. RADIATION THERAPY [Concomitant]
     Indication: METASTASES TO SPINE

REACTIONS (1)
  - DRUG HYPERSENSITIVITY [None]
